FAERS Safety Report 24141882 (Version 1)
Quarter: 2024Q3

REPORT INFORMATION
  Report Type: Spontaneous
  Country: FR (occurrence: FR)
  Receive Date: 20240726
  Receipt Date: 20240726
  Transmission Date: 20241017
  Serious: Yes (Other)
  Sender: RANBAXY
  Company Number: FR-AFSSAPS-BS2023000716

PATIENT
  Age: 58 Year
  Sex: Female
  Weight: 66 kg

DRUGS (4)
  1. DEFERASIROX [Suspect]
     Active Substance: DEFERASIROX
     Indication: Iron overload
     Dosage: 450 MILLIGRAM, DAILY
     Route: 048
     Dates: start: 2018
  2. DESFERAL [Suspect]
     Active Substance: DEFEROXAMINE MESYLATE
     Indication: Iron overload
     Dosage: 3.5 G 3X/WEEKLY, 1DOSE/1CYCLIC
     Route: 058
     Dates: start: 2014
  3. ESOMEPRAZOLE [Suspect]
     Active Substance: ESOMEPRAZOLE
     Indication: Gastrooesophageal reflux disease
     Dosage: 20 MILLIGRAM, DAILY
     Route: 048
  4. HERCEPTIN [Suspect]
     Active Substance: TRASTUZUMAB
     Indication: Breast cancer metastatic
     Dosage: 600 MILLIGRAM, 1 DOSE/WEEK
     Route: 058
     Dates: start: 20030527

REACTIONS (1)
  - Coombs positive haemolytic anaemia [Recovered/Resolved]

NARRATIVE: CASE EVENT DATE: 20221214
